FAERS Safety Report 7918467-0 (Version None)
Quarter: 2011Q4

REPORT INFORMATION
  Report Type: 
  Country: None (occurrence: None)
  Receive Date: 20111116
  Receipt Date: 20110906
  Transmission Date: 20120403
  Serious: No
  Sender: FDA-Public Use
  Company Number: US-COVIDIEN/TYCO HEALTHCARE/MALLINCKRODT-T201101748

PATIENT
  Sex: Female

DRUGS (5)
  1. PERCOCET [Concomitant]
     Dosage: UNK
  2. FENTANYL-100 [Suspect]
     Indication: ARTHRALGIA
  3. FENTANYL-100 [Suspect]
     Indication: BACK PAIN
     Dosage: 75 UG/HR, Q 3 DAYS
     Route: 062
     Dates: start: 20100101
  4. SOMA [Concomitant]
     Dosage: UNK
  5. NEURONTIN [Concomitant]
     Dosage: UNK

REACTIONS (3)
  - VULVOVAGINAL BURNING SENSATION [None]
  - RASH MACULOVESICULAR [None]
  - VULVOVAGINAL PRURITUS [None]
